FAERS Safety Report 19631127 (Version 4)
Quarter: 2021Q3

REPORT INFORMATION
  Report Type: Spontaneous
  Country: GB (occurrence: GB)
  Receive Date: 20210728
  Receipt Date: 20210827
  Transmission Date: 20211014
  Serious: Yes (Hospitalization, Other)
  Sender: FDA-Public Use
  Company Number: GB-PFIZER INC-2021905348

PATIENT
  Age: 45 Year
  Sex: Male

DRUGS (1)
  1. GENOTROPIN [Suspect]
     Active Substance: SOMATROPIN
     Indication: GROWTH HORMONE DEFICIENCY
     Dosage: 0.3 MG, DAILY
     Route: 058
     Dates: start: 2017

REACTIONS (4)
  - Cerebrovascular accident [Unknown]
  - Malaise [Unknown]
  - Device breakage [Unknown]
  - Drug dose omission by device [Unknown]
